FAERS Safety Report 4406349-0 (Version None)
Quarter: 2004Q3

REPORT INFORMATION
  Report Type: 
  Country: None (occurrence: None)
  Receive Date: 20040723
  Receipt Date: 20030629
  Transmission Date: 20050211
  Serious: No
  Sender: FDA-Public Use
  Company Number: US-GLAXOSMITHKLINE-A0414537A

PATIENT

DRUGS (3)
  1. AVANDIA [Suspect]
  2. FLAGYL [Concomitant]
  3. IMURAN [Concomitant]

REACTIONS (1)
  - HEPATIC ENZYME INCREASED [None]
